FAERS Safety Report 15082197 (Version 1)
Quarter: 2018Q2

REPORT INFORMATION
  Report Type: Spontaneous
  Country: US (occurrence: US)
  Receive Date: 20180628
  Receipt Date: 20180628
  Transmission Date: 20180711
  Serious: No
  Sender: FDA-Public Use
  Company Number: US-TEVA-2018-US-912976

PATIENT
  Sex: Female

DRUGS (3)
  1. CLONAZEPAM. [Suspect]
     Active Substance: CLONAZEPAM
     Indication: ANXIETY
     Dosage: SPLIT THE 0.5 MG TABLET
     Route: 065
     Dates: start: 2017
  2. CLONAZEPAM. [Suspect]
     Active Substance: CLONAZEPAM
     Indication: INSOMNIA
     Route: 065
     Dates: start: 2017
  3. CLONAZEPAM. [Suspect]
     Active Substance: CLONAZEPAM
     Indication: VERTIGO
     Route: 065
     Dates: start: 2017

REACTIONS (8)
  - Anxiety [Unknown]
  - Adverse reaction [Unknown]
  - Drug hypersensitivity [Unknown]
  - Insomnia [Unknown]
  - Product use in unapproved indication [Unknown]
  - Tremor [Unknown]
  - Diplopia [Unknown]
  - Feeling abnormal [Unknown]

NARRATIVE: CASE EVENT DATE: 2017
